FAERS Safety Report 13197406 (Version 2)
Quarter: 2017Q1

REPORT INFORMATION
  Report Type: Spontaneous
  Country: DE (occurrence: DE)
  Receive Date: 20170208
  Receipt Date: 20170217
  Transmission Date: 20170428
  Serious: Yes (Other)
  Sender: FDA-Public Use
  Company Number: DE-GILEAD-2017-0256788

PATIENT
  Age: 32 Year
  Sex: Female
  Weight: 48 kg

DRUGS (7)
  1. ISENTRESS [Concomitant]
     Active Substance: RALTEGRAVIR POTASSIUM
     Dosage: 400 MG, UNK
     Dates: start: 20101020
  2. DEKRISTOL [Concomitant]
     Active Substance: CHOLECALCIFEROL
     Dosage: UNK
     Dates: start: 20110118
  3. ACICLOVIR [Concomitant]
     Active Substance: ACYCLOVIR
     Dosage: UNK
     Dates: start: 20100603
  4. COTRIM FORTE [Concomitant]
     Active Substance: SULFAMETHOXAZOLE\TRIMETHOPRIM
     Dosage: 960 MG, UNK
     Dates: start: 20110103
  5. EVIPLERA [Suspect]
     Active Substance: EMTRICITABINE\RILPIVIRINE\TENOFOVIR DISOPROXIL FUMARATE
     Indication: HIV INFECTION
     Dosage: 200MG-25MG-245MG
     Route: 065
     Dates: start: 20140508, end: 20151127
  6. NOVAMINSULFON 1 A PHARMA [Concomitant]
     Dosage: UNK
     Dates: start: 20101022
  7. NORVIR [Concomitant]
     Active Substance: RITONAVIR
     Dosage: 100 MG, UNK
     Dates: start: 20130425

REACTIONS (13)
  - Viral load increased [Unknown]
  - Laceration [Unknown]
  - Poor quality sleep [Recovering/Resolving]
  - Initial insomnia [Unknown]
  - Partial seizures [Unknown]
  - Sleep disorder [Recovered/Resolved]
  - Headache [Recovered/Resolved]
  - Affective disorder [Unknown]
  - Depressed mood [Unknown]
  - Depression [Recovered/Resolved]
  - Sleep disorder [Recovered/Resolved]
  - Depression [Unknown]
  - Drug dose omission [Unknown]

NARRATIVE: CASE EVENT DATE: 20140508
